FAERS Safety Report 5243541-X (Version None)
Quarter: 2007Q1

REPORT INFORMATION
  Report Type: 
  Country: None (occurrence: None)
  Receive Date: 20070222
  Receipt Date: 20070208
  Transmission Date: 20070707
  Serious: Yes (Hospitalization)
  Sender: FDA-Public Use
  Company Number: PHBS2007JP01198

PATIENT
  Age: 24 Year
  Sex: Male

DRUGS (5)
  1. MECOBALAMIN [Concomitant]
     Indication: HYPOAESTHESIA
     Dosage: UNK, UNK
     Route: 065
     Dates: start: 19970719, end: 19970731
  2. GOSHAJINKIGAN [Concomitant]
     Dosage: UNK, UNK
     Route: 065
     Dates: start: 19970728, end: 19970731
  3. INSULIN [Concomitant]
     Route: 058
  4. TROGLITAZONE [Concomitant]
     Dosage: UNK, UNK
     Dates: start: 19970728, end: 19970731
  5. TEGRETOL [Suspect]
     Indication: HYPOAESTHESIA
     Route: 048
     Dates: start: 19970719

REACTIONS (9)
  - ALANINE AMINOTRANSFERASE INCREASED [None]
  - ASPARTATE AMINOTRANSFERASE INCREASED [None]
  - BLOOD ALKALINE PHOSPHATASE INCREASED [None]
  - BLOOD GLUCOSE DECREASED [None]
  - BLOOD LACTATE DEHYDROGENASE INCREASED [None]
  - DRUG HYPERSENSITIVITY [None]
  - HEPATIC FUNCTION ABNORMAL [None]
  - HYPOGLYCAEMIA [None]
  - PYREXIA [None]
